FAERS Safety Report 8013264-2 (Version None)
Quarter: 2011Q4

REPORT INFORMATION
  Report Type: 
  Country: None (occurrence: None)
  Receive Date: 20111229
  Receipt Date: 20111229
  Transmission Date: 20120403
  Serious: Yes (Hospitalization)
  Sender: FDA-Public Use
  Company Number: None

PATIENT
  Age: 33 Year
  Sex: Female
  Weight: 81.646 kg

DRUGS (1)
  1. CLINDAMYCIN HCL [Suspect]
     Indication: VAGINITIS BACTERIAL
     Dosage: 300 MG
     Route: 048
     Dates: start: 20111115, end: 20111129

REACTIONS (2)
  - CLOSTRIDIAL INFECTION [None]
  - MATERNAL EXPOSURE DURING PREGNANCY [None]
